FAERS Safety Report 14519590 (Version 1)
Quarter: 2018Q1

REPORT INFORMATION
  Report Type: Spontaneous
  Country: IL (occurrence: IL)
  Receive Date: 20180212
  Receipt Date: 20180212
  Transmission Date: 20180509
  Serious: Yes (Other)
  Sender: FDA-Public Use
  Company Number: IL-JNJFOC-20180210356

PATIENT
  Age: 67 Year
  Sex: Female

DRUGS (1)
  1. INFLIXIMAB, RECOMBINANT [Suspect]
     Active Substance: INFLIXIMAB
     Indication: COLITIS ULCERATIVE
     Dosage: TREATED FOR 3 MONTHS
     Route: 042

REACTIONS (2)
  - Lupus-like syndrome [Recovered/Resolved]
  - Drug-induced liver injury [Recovered/Resolved]
